FAERS Safety Report 4468371-8 (Version None)
Quarter: 2004Q4

REPORT INFORMATION
  Report Type: 
  Country: None (occurrence: None)
  Receive Date: 20041007
  Receipt Date: 20041001
  Transmission Date: 20050328
  Serious: Yes (Hospitalization)
  Sender: FDA-Public Use
  Company Number: US-GLAXOSMITHKLINE-A0528129A

PATIENT
  Age: 56 Year
  Sex: Female

DRUGS (5)
  1. PAXIL [Suspect]
     Indication: ENERGY INCREASED
     Dosage: 20MG TWICE PER DAY
     Route: 048
  2. TRILEPTAL [Concomitant]
  3. ALTACE [Concomitant]
  4. HUMALOG [Concomitant]
  5. FUROSEMIDE [Concomitant]

REACTIONS (24)
  - ANOREXIA [None]
  - CONFUSIONAL STATE [None]
  - CONSTIPATION [None]
  - CONVULSION [None]
  - DEPERSONALISATION [None]
  - DISTURBANCE IN ATTENTION [None]
  - DIZZINESS [None]
  - DYSARTHRIA [None]
  - DYSKINESIA [None]
  - EMOTIONAL DISORDER [None]
  - HEADACHE [None]
  - HYPERHIDROSIS [None]
  - HYPERVIGILANCE [None]
  - INFLUENZA LIKE ILLNESS [None]
  - INJURY [None]
  - INSOMNIA [None]
  - MENTAL DISORDER [None]
  - MUSCLE CRAMP [None]
  - NAUSEA [None]
  - NIGHTMARE [None]
  - PARAESTHESIA [None]
  - VISION BLURRED [None]
  - VOMITING [None]
  - WEIGHT DECREASED [None]
